FAERS Safety Report 6267888-3 (Version None)
Quarter: 2009Q3

REPORT INFORMATION
  Report Type: 
  Country: None (occurrence: None)
  Receive Date: 20090710
  Receipt Date: 20090710
  Transmission Date: 20100115
  Serious: Yes (Other)
  Sender: FDA-Public Use
  Company Number: None

PATIENT
  Age: 75 Year
  Sex: Female
  Weight: 61.2356 kg

DRUGS (1)
  1. HYDRALAZINE HCL 25MG TAB [Suspect]
     Indication: HYPERTENSION
     Dosage: 1 PIL TWICE DAILY
     Dates: start: 20090306, end: 20090511

REACTIONS (1)
  - OEDEMA PERIPHERAL [None]
